FAERS Safety Report 5139971-7 (Version None)
Quarter: 2006Q4

REPORT INFORMATION
  Report Type: 
  Country: None (occurrence: None)
  Receive Date: 20061031
  Receipt Date: 20060929
  Transmission Date: 20070319
  Serious: Yes (Hospitalization)
  Sender: FDA-Public Use
  Company Number: US-AMGEN-US195293

PATIENT
  Sex: Female
  Weight: 20 kg

DRUGS (7)
  1. ENBREL [Suspect]
     Indication: JUVENILE ARTHRITIS
     Route: 058
     Dates: start: 20060701, end: 20060915
  2. METHOTREXATE [Concomitant]
     Route: 065
     Dates: start: 20040720, end: 20060901
  3. INDOMETHACIN [Concomitant]
     Dates: start: 20040610
  4. ZANTAC [Concomitant]
  5. FOLIC ACID [Concomitant]
  6. SINGULAIR [Concomitant]
  7. POLY-VI-SOL [Concomitant]

REACTIONS (5)
  - ASTHENIA [None]
  - GAIT DISTURBANCE [None]
  - INJECTION SITE RASH [None]
  - LUPUS-LIKE SYNDROME [None]
  - PYREXIA [None]
